FAERS Safety Report 7988940-8 (Version None)
Quarter: 2011Q4

REPORT INFORMATION
  Report Type: 
  Country: None (occurrence: None)
  Receive Date: 20111007
  Receipt Date: 20110729
  Transmission Date: 20120403
  Serious: No
  Sender: FDA-Public Use
  Company Number: 2011HGS-002437

PATIENT
  Age: 44 Year
  Sex: Female
  Weight: 80.2867 kg

DRUGS (18)
  1. XANAX [Suspect]
     Dosage: 1 IN 1 TOTAL, ORAL
     Route: 048
     Dates: start: 20110729, end: 20110729
  2. TYLENOL PM (TYLENOL PM) (DIPHENHYDRAMINE, PARACETAMOL) [Concomitant]
  3. VALIUM [Suspect]
     Dosage: 1 IN 1 TOTAL, ORAL
     Route: 048
     Dates: start: 20110729, end: 20110729
  4. VICODIN [Concomitant]
  5. HYDROXYZINE [Concomitant]
  6. BENLYSTA [Suspect]
     Indication: SYSTEMIC LUPUS ERYTHEMATOSUS
     Dosage: 10 MG/KG, 1 IN 28 D, INTRAVENOUS DRIP
     Route: 041
     Dates: start: 20110729
  7. DILAUDID [Concomitant]
  8. MARIJUANA (CANNABIS SATIVA) [Concomitant]
  9. CALCIUM PLUS VITAMIN D (VITACAL) (CALCIUM, VITAMIN D NOS) [Concomitant]
  10. BENADRYL [Suspect]
     Dosage: 50 MG, 1 IN 1 TOTAL, ORAL
     Route: 048
     Dates: start: 20110729, end: 20110729
  11. PREDNISONE TAB [Concomitant]
  12. KLONOPIN [Concomitant]
  13. SUPER B COMPLEX VITAMIN (BECOSYM FORTE) (PYRIDOXINE HYDROCHLORIDE, THI [Concomitant]
  14. OMEPRAZOLE [Concomitant]
  15. VENLFAXINE [Concomitant]
  16. REMERON [Concomitant]
  17. MOBIC [Concomitant]
  18. MYSOLINE [Concomitant]

REACTIONS (11)
  - URINARY TRACT INFECTION [None]
  - SOMNOLENCE [None]
  - PAIN IN EXTREMITY [None]
  - VERTIGO [None]
  - OEDEMA PERIPHERAL [None]
  - JOINT SWELLING [None]
  - PRURITUS [None]
  - PAIN [None]
  - ARTHRALGIA [None]
  - DYSURIA [None]
  - INFUSION RELATED REACTION [None]
